FAERS Safety Report 25023489 (Version 2)
Quarter: 2025Q3

REPORT INFORMATION
  Report Type: Spontaneous
  Country: EU (occurrence: EU)
  Receive Date: 20250228
  Receipt Date: 20250809
  Transmission Date: 20251020
  Serious: Yes (Other)
  Sender: ALEXION PHARMACEUTICALS
  Company Number: EU-ASTRAZENECA-202502EEA008098DE

PATIENT
  Sex: Male

DRUGS (3)
  1. CALQUENCE [Suspect]
     Active Substance: ACALABRUTINIB
     Indication: Chronic lymphocytic leukaemia
     Route: 065
  2. RITUXIMAB [Concomitant]
     Active Substance: RITUXIMAB
     Route: 065
  3. ACALABRUTINIB [Concomitant]
     Active Substance: ACALABRUTINIB
     Route: 065

REACTIONS (5)
  - Thrombocytopenia [Unknown]
  - Atrial fibrillation [Unknown]
  - Malignant neoplasm progression [Unknown]
  - Hypertension [Unknown]
  - Acquired gene mutation [Unknown]
